FAERS Safety Report 12294114 (Version 1)
Quarter: 2016Q2

REPORT INFORMATION
  Report Type: Spontaneous
  Country: US (occurrence: US)
  Receive Date: 20160422
  Receipt Date: 20160422
  Transmission Date: 20160815
  Serious: Yes (Hospitalization)
  Sender: FDA-Public Use
  Company Number: US-ASTRAZENECA-2016SE42362

PATIENT
  Age: 59 Year
  Sex: Male
  Weight: 108.9 kg

DRUGS (7)
  1. PROAIR HFA [Concomitant]
     Active Substance: ALBUTEROL SULFATE
     Indication: DYSPNOEA
     Dosage: TWO PUFFS THREE TO FOUR TIMES DAILY
     Route: 055
     Dates: start: 2002
  2. DALIRESP [Suspect]
     Active Substance: ROFLUMILAST
     Indication: DYSPNOEA
     Route: 048
     Dates: start: 2015
  3. PROAIR HFA [Concomitant]
     Active Substance: ALBUTEROL SULFATE
     Indication: COUGH
     Dosage: TWO PUFFS THREE TO FOUR TIMES DAILY
     Route: 055
     Dates: start: 2002
  4. ALBUTEROL SULFATE. [Concomitant]
     Active Substance: ALBUTEROL SULFATE
     Indication: DYSPNOEA
     Dosage: THREE TIMES DAILY, SINCE 2002 OR 2004
     Route: 055
  5. PROAIR HFA [Concomitant]
     Active Substance: ALBUTEROL SULFATE
     Indication: WHEEZING
     Dosage: TWO PUFFS THREE TO FOUR TIMES DAILY
     Route: 055
     Dates: start: 2002
  6. OXYGEN. [Concomitant]
     Active Substance: OXYGEN
     Dosage: AT NIGHT AND AS NEEDED DURING THE DAY WITH ACTIVITIES
  7. SPIRIVA [Concomitant]
     Active Substance: TIOTROPIUM BROMIDE MONOHYDRATE
     Indication: DYSPNOEA
     Route: 055

REACTIONS (3)
  - Intentional product misuse [Unknown]
  - Thrombosis [Unknown]
  - Drug dose omission [Unknown]

NARRATIVE: CASE EVENT DATE: 2015
